FAERS Safety Report 25051882 (Version 1)
Quarter: 2025Q1

REPORT INFORMATION
  Report Type: Report from Study
  Country: IT (occurrence: IT)
  Receive Date: 20250307
  Receipt Date: 20250307
  Transmission Date: 20250409
  Serious: Yes (Hospitalization, Other)
  Sender: TAKEDA
  Company Number: IT-JNJFOC-20241274485

PATIENT
  Age: 42 Year
  Sex: Male

DRUGS (3)
  1. BORTEZOMIB [Suspect]
     Active Substance: BORTEZOMIB
     Indication: Thrombotic thrombocytopenic purpura
     Dosage: 1.3 MILLIGRAM/SQ. METER, 3/WEEK
  2. RITUXIMAB [Concomitant]
     Active Substance: RITUXIMAB
     Indication: Thrombotic thrombocytopenic purpura
  3. CAPLACIZUMAB [Concomitant]
     Active Substance: CAPLACIZUMAB
     Indication: Thrombotic thrombocytopenic purpura

REACTIONS (5)
  - Pneumocystis jirovecii pneumonia [Unknown]
  - Pneumonia [Unknown]
  - Therapy non-responder [Unknown]
  - Off label use [Unknown]
  - Paraesthesia [Unknown]
